FAERS Safety Report 16830692 (Version 2)
Quarter: 2019Q4

REPORT INFORMATION
  Report Type: Spontaneous
  Country: BE (occurrence: BE)
  Receive Date: 20190920
  Receipt Date: 20191231
  Transmission Date: 20200122
  Serious: Yes (Life-Threatening, Other)
  Sender: FDA-Public Use
  Company Number: BE-BRISTOL-MYERS SQUIBB COMPANY-BMS-2019-089804

PATIENT
  Sex: Male

DRUGS (1)
  1. NIVOLUMAB [Suspect]
     Active Substance: NIVOLUMAB
     Indication: SQUAMOUS CELL CARCINOMA OF HEAD AND NECK
     Dosage: UNAVAILABLE
     Route: 065

REACTIONS (5)
  - Tongue oedema [Unknown]
  - Face oedema [Unknown]
  - Obstructive airways disorder [Unknown]
  - Metastases to skin [Unknown]
  - Supraventricular tachycardia [Unknown]
